FAERS Safety Report 5666460-3 (Version None)
Quarter: 2008Q1

REPORT INFORMATION
  Report Type: 
  Country: None (occurrence: None)
  Receive Date: 20080314
  Receipt Date: 20070529
  Transmission Date: 20080703
  Serious: No
  Sender: FDA-Public Use
  Company Number: US-ABBOTT-07P-163-0430697-00

PATIENT
  Sex: Female

DRUGS (3)
  1. HUMIRA [Suspect]
     Indication: DRUG USE FOR UNKNOWN INDICATION
     Dates: start: 20050501
  2. HUMIRA [Suspect]
     Dates: start: 20050501
  3. HUMIRA [Suspect]

REACTIONS (6)
  - CELLULITIS [None]
  - ERYTHEMA [None]
  - JOINT SWELLING [None]
  - MUSCLE SPASMS [None]
  - NASAL ULCER [None]
  - STAPHYLOCOCCAL INFECTION [None]
